FAERS Safety Report 15291312 (Version 2)
Quarter: 2018Q3

REPORT INFORMATION
  Report Type: Report from Study
  Country: DE (occurrence: DE)
  Receive Date: 20180817
  Receipt Date: 20180820
  Transmission Date: 20181010
  Serious: Yes (Hospitalization)
  Sender: FDA-Public Use
  Company Number: DE-TEVA-2018-DE-942654

PATIENT
  Age: 84 Year
  Sex: Male
  Weight: 95 kg

DRUGS (10)
  1. CLOPIDOGREL [Suspect]
     Active Substance: CLOPIDOGREL BISULFATE
     Route: 048
  2. KALIUM KAPSEL [Concomitant]
     Dosage: 2 DOSAGE FORMS DAILY; DAILY DOSE: 2 DF DOSAGE FORM EVERY DAYS
     Route: 048
  3. ATORVASTATIN [Concomitant]
     Active Substance: ATORVASTATIN
     Dosage: 80 MILLIGRAM DAILY; DAILY DOSE: 80 MG MILLGRAM(S) EVERY DAYS
     Route: 048
  4. VALSARTAN. [Concomitant]
     Active Substance: VALSARTAN
     Dosage: 160 MILLIGRAM DAILY; DAILY DOSE: 160 MG MILLGRAM(S) EVERY DAYS
     Route: 048
  5. LEVODOPA / BENSERAZIDE 100 MG / 25 MG [Concomitant]
     Dosage: 2 DOSAGE FORMS DAILY; DAILY DOSE: 2 DF DOSAGE FORM EVERY DAYS
     Route: 048
  6. AMIODARON [Concomitant]
     Active Substance: AMIODARONE
     Indication: ATRIAL FIBRILLATION
     Dosage: 200 MILLIGRAM DAILY; DAILY DOSE: 200 MG MILLGRAM(S) EVERY DAYS
     Route: 048
  7. JARDIANCE [Concomitant]
     Active Substance: EMPAGLIFLOZIN
     Dosage: 10 MILLIGRAM DAILY; DAILY DOSE: 10 MG MILLGRAM(S) EVERY DAYS
     Route: 048
  8. DUTASTERID / TAMSULOSIN 0.5 MG / 0.4 MG [Concomitant]
     Dosage: 1 DOSAGE FORMS DAILY;
     Route: 048
  9. RIVAROXABAN [Suspect]
     Active Substance: RIVAROXABAN
     Indication: ATRIAL FIBRILLATION
     Dosage: 15 MILLIGRAM DAILY;
     Route: 048
     Dates: start: 201704
  10. METOPROLOL. [Concomitant]
     Active Substance: METOPROLOL
     Dosage: 23.75 MILLIGRAM DAILY; DAILY DOSE: 23.75 MG MILLGRAM(S) EVERY DAYS
     Route: 048

REACTIONS (1)
  - Cerebral haemorrhage [Unknown]

NARRATIVE: CASE EVENT DATE: 20180609
